FAERS Safety Report 11061335 (Version 2)
Quarter: 2015Q2

REPORT INFORMATION
  Report Type: Spontaneous
  Country: JP (occurrence: JP)
  Receive Date: 20150424
  Receipt Date: 20150612
  Transmission Date: 20150821
  Serious: Yes (Other)
  Sender: FDA-Public Use
  Company Number: JP-AMGEN-JPNSP2014081810

PATIENT
  Sex: Male
  Weight: 1.49 kg

DRUGS (10)
  1. ENBREL [Suspect]
     Active Substance: ETANERCEPT
     Indication: EXPOSURE DURING PREGNANCY
     Dosage: UNK, WEEKLY
     Route: 064
     Dates: end: 20140808
  2. THYRADIN [Suspect]
     Active Substance: LEVOTHYROXINE
     Indication: GASTROOESOPHAGEAL REFLUX DISEASE
  3. GASTER [Concomitant]
     Active Substance: FAMOTIDINE
     Indication: GASTROOESOPHAGEAL REFLUX DISEASE
     Dosage: UNK
  4. BIOFERMIN T [Concomitant]
     Dosage: UNK
  5. CALONAL [Concomitant]
     Active Substance: ACETAMINOPHEN
     Dosage: UNK
  6. THYRADIN [Suspect]
     Active Substance: LEVOTHYROXINE
     Indication: HYPOTHYROIDISM
     Dosage: 125 MUG, UNK
     Route: 065
  7. FERROMIA [Concomitant]
     Active Substance: FERROUS CITRATE
     Dosage: UNK
  8. OMEPRAL                            /00661201/ [Concomitant]
     Active Substance: OMEPRAZOLE
     Indication: GASTROOESOPHAGEAL REFLUX DISEASE
     Dosage: UNK
  9. PREDONINE [Suspect]
     Active Substance: PREDNISOLONE\PREDNISOLONE ACETATE\PREDNISOLONE SODIUM SUCCINATE
     Indication: RHEUMATOID ARTHRITIS
     Dosage: 12.5 MG, UNK
     Route: 064
  10. YAKUBAN [Concomitant]
     Active Substance: FLURBIPROFEN
     Dosage: UNK

REACTIONS (3)
  - Premature baby [Recovered/Resolved]
  - Maternal exposure during pregnancy [Unknown]
  - Patent ductus arteriosus [Recovered/Resolved]

NARRATIVE: CASE EVENT DATE: 2014
